FAERS Safety Report 7409750-6 (Version None)
Quarter: 2011Q2

REPORT INFORMATION
  Report Type: 
  Country: None (occurrence: None)
  Receive Date: 20110407
  Receipt Date: 20110407
  Transmission Date: 20111010
  Serious: Yes (Life-Threatening, Hospitalization)
  Sender: FDA-Public Use
  Company Number: None

PATIENT
  Age: 28 Year
  Sex: Male
  Weight: 90.7194 kg

DRUGS (4)
  1. BETHAMETHASONE DIPROPIONATE [Concomitant]
  2. ALBUTEROL [Concomitant]
  3. BACTRIM DS [Suspect]
     Indication: BRONCHITIS
     Dates: start: 20100225, end: 20100225
  4. BACTRIM DS [Suspect]
     Indication: BRONCHITIS
     Dates: start: 20100213, end: 20100218

REACTIONS (7)
  - DIZZINESS [None]
  - FLUSHING [None]
  - ASTHENIA [None]
  - NAUSEA [None]
  - ERYTHEMA [None]
  - PYREXIA [None]
  - MYALGIA [None]
